APPROVED DRUG PRODUCT: SODIUM OXYBATE
Active Ingredient: SODIUM OXYBATE
Strength: 0.5GM/ML
Dosage Form/Route: SOLUTION;ORAL
Application: A203631 | Product #001 | TE Code: AA
Applicant: AMNEAL PHARMACEUTICALS LLC
Approved: Sep 10, 2025 | RLD: No | RS: No | Type: RX